FAERS Safety Report 7512648-6 (Version None)
Quarter: 2011Q2

REPORT INFORMATION
  Report Type: 
  Country: None (occurrence: None)
  Receive Date: 20110525
  Receipt Date: 20110525
  Transmission Date: 20111010
  Serious: Yes (Hospitalization)
  Sender: FDA-Public Use
  Company Number: None

PATIENT
  Sex: Male
  Weight: 149.6 kg

DRUGS (14)
  1. RAD001 EVEROLIMUS [Suspect]
     Indication: COLORECTAL CANCER
     Dosage: 10 MG PO QD
     Route: 048
     Dates: start: 20110425, end: 20110522
  2. GLIPIZIDE [Concomitant]
  3. PHOSPHA [Concomitant]
  4. AV-951 [Suspect]
     Indication: COLORECTAL CANCER
     Dosage: 1 MG PO QD
     Route: 048
     Dates: start: 20110425, end: 20110522
  5. MULTI-VITAMINS [Concomitant]
  6. AMLODIPINE [Concomitant]
  7. LEVOTHYROXINE SODIUM [Concomitant]
  8. CLARITIN-D 24 HOUR [Concomitant]
  9. HYDROCODONE BITARTRATE [Concomitant]
  10. METOPROLOL [Concomitant]
  11. NASONEX [Concomitant]
  12. OMEPRAZOLE [Concomitant]
  13. LIPITOR [Concomitant]
  14. ALBUTEROL SULFATE AUTOHALER [Concomitant]

REACTIONS (2)
  - PLEURITIC PAIN [None]
  - PYREXIA [None]
